FAERS Safety Report 9834155 (Version 1)
Quarter: 2014Q1

REPORT INFORMATION
  Report Type: Spontaneous
  Country: DE (occurrence: DE)
  Receive Date: 20140122
  Receipt Date: 20140122
  Transmission Date: 20141002
  Serious: Yes (Congenital Anomaly)
  Sender: FDA-Public Use
  Company Number: DE-RANBAXY-2014R1-77275

PATIENT
  Age: 1 Day
  Sex: Female
  Weight: 2.01 kg

DRUGS (2)
  1. FLUOXETINE [Suspect]
     Indication: DEPRESSION
     Dosage: 20 MG, QD
     Route: 064
     Dates: start: 20081122, end: 20090702
  2. CEFUROXIM [Concomitant]
     Indication: PREMATURE RUPTURE OF MEMBRANES
     Route: 064

REACTIONS (4)
  - Atrial septal defect [Not Recovered/Not Resolved]
  - Ventricular septal defect [Not Recovered/Not Resolved]
  - Intraventricular haemorrhage neonatal [Unknown]
  - Premature baby [Recovered/Resolved]
